FAERS Safety Report 6952672-5 (Version None)
Quarter: 2010Q3

REPORT INFORMATION
  Report Type: 
  Country: None (occurrence: None)
  Receive Date: 20100829
  Receipt Date: 20100513
  Transmission Date: 20110219
  Serious: No
  Sender: FDA-Public Use
  Company Number: US-ABBOTT-10P-163-0644814-00

PATIENT
  Sex: Female

DRUGS (8)
  1. NIASPAN [Suspect]
     Indication: HIGH DENSITY LIPOPROTEIN DECREASED
     Route: 048
     Dates: start: 20091101
  2. SIMVASTATIN [Concomitant]
     Indication: PRODUCT USED FOR UNKNOWN INDICATION
     Route: 048
  3. ASPIRIN [Concomitant]
     Indication: PRODUCT USED FOR UNKNOWN INDICATION
     Route: 048
  4. M.V.I. [Concomitant]
     Indication: PRODUCT USED FOR UNKNOWN INDICATION
  5. COZAAR [Concomitant]
     Indication: PRODUCT USED FOR UNKNOWN INDICATION
  6. DIAZIDE [Concomitant]
     Indication: SWELLING
  7. GARLIC [Concomitant]
     Indication: PRODUCT USED FOR UNKNOWN INDICATION
  8. OTC PAIN RELIEVER [Concomitant]
     Indication: ARTHRALGIA

REACTIONS (4)
  - FEELING HOT [None]
  - FLUSHING [None]
  - HYPERSENSITIVITY [None]
  - PRURITUS [None]
